FAERS Safety Report 9680863 (Version 1)
Quarter: 2013Q4

REPORT INFORMATION
  Report Type: Spontaneous
  Country: US (occurrence: None)
  Receive Date: 20131108
  Receipt Date: 20131108
  Transmission Date: 20140711
  Serious: Yes (Other)
  Sender: FDA-Public Use
  Company Number: None

PATIENT
  Age: 57 Year
  Sex: Male
  Weight: 87.09 kg

DRUGS (4)
  1. LANSOPRAZOLE [Suspect]
     Indication: GASTROOESOPHAGEAL REFLUX DISEASE
     Dosage: 2 PILLS, BID, ORAL
     Route: 048
     Dates: start: 20131101, end: 20131106
  2. ATENOLOL [Concomitant]
  3. BENAZEPRIL [Concomitant]
  4. NIFEDIPINE [Concomitant]

REACTIONS (2)
  - Drug ineffective [None]
  - Product substitution issue [None]
